FAERS Safety Report 18258919 (Version 1)
Quarter: 2020Q3

REPORT INFORMATION
  Report Type: Spontaneous
  Country: US (occurrence: US)
  Receive Date: 20200911
  Receipt Date: 20200911
  Transmission Date: 20201103
  Serious: Yes (Hospitalization)
  Sender: FDA-Public Use
  Company Number: US-JNJFOC-A-NJ2017-158886

PATIENT
  Age: 48 Year
  Sex: Female
  Weight: 56.69 kg

DRUGS (10)
  1. VELETRI [Suspect]
     Active Substance: EPOPROSTENOL
     Dosage: 30 NG/KG, PER MIN
     Route: 042
  2. VELETRI [Suspect]
     Active Substance: EPOPROSTENOL
     Dosage: 40 NG/KG, PER MIN
     Route: 042
  3. LETAIRIS [Concomitant]
     Active Substance: AMBRISENTAN
  4. VELETRI [Suspect]
     Active Substance: EPOPROSTENOL
     Indication: PULMONARY ARTERIAL HYPERTENSION
     Dosage: 40 NG/KG, PER MIN
     Route: 042
  5. VELETRI [Suspect]
     Active Substance: EPOPROSTENOL
     Dosage: 34 NG/KG, PER MIN
     Route: 042
  6. IMODIUM [Suspect]
     Active Substance: LOPERAMIDE HYDROCHLORIDE
     Indication: PRODUCT USED FOR UNKNOWN INDICATION
     Dosage: UNK
     Route: 065
  7. AMLODIPINE [Concomitant]
     Active Substance: AMLODIPINE BESYLATE
  8. VELETRI [Suspect]
     Active Substance: EPOPROSTENOL
     Dosage: 28 NG/KG, PER MIN
     Route: 042
  9. ADEMPAS [Concomitant]
     Active Substance: RIOCIGUAT
  10. AMBRISENTAN [Concomitant]
     Active Substance: AMBRISENTAN

REACTIONS (45)
  - Device dislocation [Unknown]
  - Device occlusion [Unknown]
  - Device connection issue [Unknown]
  - Pulmonary congestion [Unknown]
  - Blood potassium decreased [Unknown]
  - Catheter management [Unknown]
  - Hypotension [Unknown]
  - Nasopharyngitis [Unknown]
  - Device use error [Recovered/Resolved]
  - Constipation [Unknown]
  - Malaise [Unknown]
  - Pain in jaw [Not Recovered/Not Resolved]
  - Pain [Unknown]
  - Nausea [Unknown]
  - Sleep apnoea syndrome [Recovered/Resolved]
  - Pyrexia [Unknown]
  - Feeling cold [Unknown]
  - Dyspnoea exertional [Recovering/Resolving]
  - Flushing [Not Recovered/Not Resolved]
  - Vomiting [Unknown]
  - Product dose omission issue [Unknown]
  - Fatigue [Unknown]
  - Oxygen therapy [Unknown]
  - Arthralgia [Not Recovered/Not Resolved]
  - Pulmonary arterial pressure increased [Unknown]
  - Oxygen consumption increased [Unknown]
  - Weight decreased [Unknown]
  - Lactose intolerance [Unknown]
  - Dyspnoea [Recovering/Resolving]
  - Palpitations [Unknown]
  - Pruritus [Not Recovered/Not Resolved]
  - Swelling face [Not Recovered/Not Resolved]
  - Asthenia [Not Recovered/Not Resolved]
  - Pneumonia [Unknown]
  - Device alarm issue [Unknown]
  - Dizziness [Unknown]
  - Diarrhoea [Not Recovered/Not Resolved]
  - Catheterisation cardiac abnormal [Unknown]
  - Chest pain [Unknown]
  - Condition aggravated [Unknown]
  - Erythema [Unknown]
  - Headache [Unknown]
  - Hot flush [Unknown]
  - Lip dry [Unknown]
  - Decreased appetite [Not Recovered/Not Resolved]

NARRATIVE: CASE EVENT DATE: 20170828
